FAERS Safety Report 12192177 (Version 2)
Quarter: 2016Q3

REPORT INFORMATION
  Report Type: Report from Study
  Country: GB (occurrence: GB)
  Receive Date: 20160318
  Receipt Date: 20160703
  Transmission Date: 20161109
  Serious: Yes (Hospitalization, Other)
  Sender: FDA-Public Use
  Company Number: GB-AMGEN-GBRSL2016031216

PATIENT
  Age: 66 Year
  Sex: Male

DRUGS (1)
  1. ARANESP [Suspect]
     Active Substance: DARBEPOETIN ALFA
     Indication: PRODUCT USED FOR UNKNOWN INDICATION
     Dosage: 100 MUG, UNK
     Route: 065

REACTIONS (4)
  - Infection [Recovered/Resolved]
  - Pneumonia [Unknown]
  - Haemodialysis [Unknown]
  - Escherichia infection [Unknown]

NARRATIVE: CASE EVENT DATE: 2016
